FAERS Safety Report 7157520-9 (Version None)
Quarter: 2010Q4

REPORT INFORMATION
  Report Type: 
  Country: None (occurrence: None)
  Receive Date: 20101214
  Receipt Date: 20100216
  Transmission Date: 20110411
  Serious: No
  Sender: FDA-Public Use
  Company Number: US-ASTRAZENECA-2010SE07013

PATIENT
  Age: 60 Year
  Sex: Male

DRUGS (3)
  1. CRESTOR [Suspect]
     Route: 048
  2. BLOOD PRESSURE MEDICATIONS [Concomitant]
  3. METFORMEN [Concomitant]

REACTIONS (1)
  - BLOOD CREATININE INCREASED [None]
